FAERS Safety Report 14961496 (Version 1)
Quarter: 2018Q2

REPORT INFORMATION
  Report Type: Spontaneous
  Country: CA (occurrence: CA)
  Receive Date: 20180601
  Receipt Date: 20180601
  Transmission Date: 20180711
  Serious: Yes (Hospitalization, Other)
  Sender: FDA-Public Use
  Company Number: CA-ORION CORPORATION ORION PHARMA-TREX2018-0216

PATIENT
  Age: 40 Year
  Sex: Female
  Weight: 75 kg

DRUGS (7)
  1. METHOTREXATE (TRADE NAME UNKNOWN) [Suspect]
     Active Substance: METHOTREXATE
     Route: 065
     Dates: start: 201710
  2. INFLECTRA [Suspect]
     Active Substance: INFLIXIMAB-DYYB
     Dosage: 600 MG, CYCLICAL (AT 1, 4 WEEKS, THEN 300 MG EVERY 8 WEEKS
     Route: 042
     Dates: start: 20180117
  3. PREDNISONE. [Suspect]
     Active Substance: PREDNISONE
     Dosage: IN DECREASING DOSE
     Route: 065
     Dates: start: 201710
  4. INFLECTRA [Suspect]
     Active Substance: INFLIXIMAB-DYYB
     Dosage: 600 MG CYCLICAL (AT 1,4 WEEKS, THEN 300 MG EVERY 8 WEEKS
     Route: 042
     Dates: start: 20180228
  5. INFLECTRA [Suspect]
     Active Substance: INFLIXIMAB-DYYB
     Dosage: 600 MG CYCLICAL (AT 1,4 WEEKS, THEN 300 MG EVERY 8 WEEKS
     Route: 042
     Dates: start: 20180411
  6. SOLU-MEDROL [Suspect]
     Active Substance: METHYLPREDNISOLONE SODIUM SUCCINATE
     Route: 042
     Dates: start: 201710
  7. INFLECTRA [Suspect]
     Active Substance: INFLIXIMAB-DYYB
     Indication: COLITIS ULCERATIVE
     Dosage: 600 MG, CYCLICAL (AT 1, 4 WEEKS, THEN 300 MG EVERY 8 WEEKS)
     Route: 042
     Dates: start: 20171022

REACTIONS (2)
  - Pulmonary embolism [Unknown]
  - Condition aggravated [Unknown]

NARRATIVE: CASE EVENT DATE: 20171228
